FAERS Safety Report 8541683-4 (Version None)
Quarter: 2012Q3

REPORT INFORMATION
  Report Type: 
  Country: None (occurrence: None)
  Receive Date: 20120726
  Receipt Date: 20120717
  Transmission Date: 20120928
  Serious: Yes (Other)
  Sender: FDA-Public Use
  Company Number: CHPA2012FR012464

PATIENT
  Sex: Female
  Weight: 78 kg

DRUGS (2)
  1. NICOTINE [Suspect]
     Dosage: 21 MG, QD
     Route: 062
     Dates: start: 20120521, end: 20120521
  2. NICOTINE [Suspect]
     Dosage: 10.5 MG, QD
     Route: 062
     Dates: start: 20120522, end: 20120522

REACTIONS (10)
  - CYANOSIS [None]
  - ANOSMIA [None]
  - PALPITATIONS [None]
  - SINUSITIS [None]
  - WRONG TECHNIQUE IN DRUG USAGE PROCESS [None]
  - DYSGEUSIA [None]
  - GINGIVAL SWELLING [None]
  - HYPERHIDROSIS [None]
  - MOUTH HAEMORRHAGE [None]
  - NAUSEA [None]
